FAERS Safety Report 7849483-5 (Version None)
Quarter: 2011Q4

REPORT INFORMATION
  Report Type: 
  Country: None (occurrence: None)
  Receive Date: 20111026
  Receipt Date: 20111014
  Transmission Date: 20120403
  Serious: Yes (Hospitalization)
  Sender: FDA-Public Use
  Company Number: FR-JNJFOC-20111009968

PATIENT
  Sex: Male

DRUGS (6)
  1. FUROSEMIDE [Concomitant]
     Route: 065
  2. INSPRA [Concomitant]
     Route: 065
  3. ZOLPIDEM TARTRATE [Concomitant]
     Route: 065
  4. ACETAMINOPHEN AND TRAMADOL HCL [Suspect]
     Indication: PAIN
     Route: 048
     Dates: start: 20110906, end: 20110926
  5. LAMALINE [Suspect]
     Indication: PAIN
     Route: 048
     Dates: start: 20110922, end: 20110926
  6. PERINDOPRIL ERBUMINE [Concomitant]
     Route: 065

REACTIONS (3)
  - DISTURBANCE IN ATTENTION [None]
  - CONFUSIONAL STATE [None]
  - DISORIENTATION [None]
